FAERS Safety Report 25616652 (Version 1)
Quarter: 2025Q3

REPORT INFORMATION
  Report Type: Spontaneous
  Country: IN (occurrence: None)
  Receive Date: 20250728
  Receipt Date: 20250728
  Transmission Date: 20251020
  Serious: No
  Sender: FDA-CTU
  Company Number: None

PATIENT
  Age: 23 Year
  Sex: Male
  Weight: 67 kg

DRUGS (3)
  1. FINASTERIDE [Suspect]
     Active Substance: FINASTERIDE
     Indication: Alopecia
     Dosage: 1 TABLET(S) DAILY ORAL
     Route: 048
     Dates: start: 20240601, end: 20250726
  2. FINASTERIDE [Suspect]
     Active Substance: FINASTERIDE
     Indication: Seborrhoeic dermatitis
  3. Abbot follihair [Concomitant]

REACTIONS (5)
  - Feelings of worthlessness [None]
  - Asthenia [None]
  - Suicidal ideation [None]
  - Delusional perception [None]
  - Thinking abnormal [None]

NARRATIVE: CASE EVENT DATE: 20250620
